FAERS Safety Report 14768310 (Version 12)
Quarter: 2020Q4

REPORT INFORMATION
  Report Type: Report from Study
  Country: CN (occurrence: CN)
  Receive Date: 20180417
  Receipt Date: 20201027
  Transmission Date: 20210113
  Serious: Yes (Other)
  Sender: FDA-Public Use
  Company Number: CN-JNJFOC-20180414083

PATIENT
  Age: 36 Year
  Sex: Male
  Weight: 61.9 kg

DRUGS (17)
  1. LINEZOLID. [Suspect]
     Active Substance: LINEZOLID
     Route: 048
  2. MOXIFLOXACIN. [Suspect]
     Active Substance: MOXIFLOXACIN
     Route: 065
  3. CAPREOMYCIN [Suspect]
     Active Substance: CAPREOMYCIN
     Indication: TUBERCULOSIS
     Route: 065
  4. SIRTURO [Suspect]
     Active Substance: BEDAQUILINE FUMARATE
     Route: 048
     Dates: start: 201804, end: 201807
  5. CLOFAZIMINE [Suspect]
     Active Substance: CLOFAZIMINE
     Route: 065
  6. COLISTIN [Suspect]
     Active Substance: COLISTIN
     Indication: TUBERCULOSIS
     Route: 065
  7. CYCLOSERINE. [Suspect]
     Active Substance: CYCLOSERINE
     Indication: TUBERCULOSIS
     Route: 065
  8. CYCLOSERINE. [Suspect]
     Active Substance: CYCLOSERINE
     Route: 065
  9. BENDAZOLINE [Suspect]
     Active Substance: TOLAZOLINE HYDROCHLORIDE
     Indication: TUBERCULOSIS
     Route: 065
  10. CAPREOMYCIN [Suspect]
     Active Substance: CAPREOMYCIN
     Route: 065
  11. LINEZOLID. [Suspect]
     Active Substance: LINEZOLID
     Indication: TUBERCULOSIS
     Route: 048
  12. PROTHIONAMIDE [Suspect]
     Active Substance: PROTIONAMIDE
     Indication: TUBERCULOSIS
     Route: 065
  13. SIRTURO [Suspect]
     Active Substance: BEDAQUILINE FUMARATE
     Route: 048
     Dates: start: 201807
  14. PARA-AMINOSALICYLIC ACID [Suspect]
     Active Substance: AMINOSALICYLIC ACID
     Indication: TUBERCULOSIS
     Route: 065
  15. SIRTURO [Suspect]
     Active Substance: BEDAQUILINE FUMARATE
     Indication: TUBERCULOSIS
     Route: 048
     Dates: start: 20180404, end: 201804
  16. MOXIFLOXACIN. [Suspect]
     Active Substance: MOXIFLOXACIN
     Indication: TUBERCULOSIS
     Route: 065
  17. CLOFAZIMINE [Suspect]
     Active Substance: CLOFAZIMINE
     Indication: TUBERCULOSIS
     Route: 065

REACTIONS (1)
  - Hepatotoxicity [Not Recovered/Not Resolved]

NARRATIVE: CASE EVENT DATE: 20180410
